FAERS Safety Report 9385749 (Version 1)
Quarter: 2013Q3

REPORT INFORMATION
  Report Type: Spontaneous
  Country: US (occurrence: US)
  Receive Date: 20130705
  Receipt Date: 20130705
  Transmission Date: 20140515
  Serious: No
  Sender: FDA-Public Use
  Company Number: US-US-EMD SERONO, INC.-7066029

PATIENT
  Age: 46 Year
  Sex: Female

DRUGS (3)
  1. REBIF [Suspect]
     Indication: MULTIPLE SCLEROSIS
     Route: 058
     Dates: start: 20110420
  2. REBIF [Suspect]
     Route: 058
     Dates: start: 201105
  3. IBUPROFEN [Concomitant]
     Indication: PREMEDICATION

REACTIONS (5)
  - Panic attack [Recovered/Resolved]
  - Anxiety [Recovered/Resolved]
  - Thinking abnormal [Recovered/Resolved]
  - Depression [Unknown]
  - Injection site erythema [Unknown]
